FAERS Safety Report 10077457 (Version 2)
Quarter: 2014Q2

REPORT INFORMATION
  Report Type: Spontaneous
  Country: US (occurrence: US)
  Receive Date: 20140414
  Receipt Date: 20140414
  Transmission Date: 20141212
  Serious: No
  Sender: FDA-Public Use
  Company Number: US-BANPHARM-20131555

PATIENT
  Age: 54 Year
  Sex: Female
  Weight: 74.84 kg

DRUGS (4)
  1. ALEVE LIQUID GELS 220 MG [Suspect]
     Dosage: 1 DF, QD,
     Route: 048
     Dates: end: 201307
  2. ZANTAC [Concomitant]
  3. ALLERGY MEDICATION [Concomitant]
  4. BACTRIM [Concomitant]

REACTIONS (2)
  - Urticaria [Not Recovered/Not Resolved]
  - Swelling face [Unknown]
